FAERS Safety Report 16780691 (Version 1)
Quarter: 2019Q3

REPORT INFORMATION
  Report Type: Spontaneous
  Country: QA (occurrence: QA)
  Receive Date: 20190906
  Receipt Date: 20190906
  Transmission Date: 20191005
  Serious: Yes (Life-Threatening, Hospitalization, Other)
  Sender: FDA-Public Use
  Company Number: QA-BRISTOL-MYERS SQUIBB COMPANY-BMS-2019-085685

PATIENT
  Age: 67 Year
  Sex: Male

DRUGS (1)
  1. WARFARIN SODIUM. [Suspect]
     Active Substance: WARFARIN SODIUM
     Indication: ATRIAL FIBRILLATION
     Dosage: UNK
     Route: 048

REACTIONS (2)
  - Retroperitoneal haemorrhage [Recovered/Resolved]
  - Haemoglobin decreased [Recovering/Resolving]
